FAERS Safety Report 6255730-6 (Version None)
Quarter: 2009Q3

REPORT INFORMATION
  Report Type: 
  Country: None (occurrence: None)
  Receive Date: 20090701
  Receipt Date: 20090616
  Transmission Date: 20100115
  Serious: Yes (Hospitalization)
  Sender: FDA-Public Use
  Company Number: 1000007064

PATIENT
  Age: 59 Year
  Sex: Male

DRUGS (5)
  1. MILNACIPRAN (MILNACIPRAN  HYDROCHLORIDE)(TABLETS) [Suspect]
     Dosage: 30 MG (15 MG, 2 IN 1 D), ORAL
     Route: 048
     Dates: start: 20090521, end: 20090525
  2. OLMETEC [Suspect]
     Dosage: (20 MG)
     Dates: start: 20090224
  3. NARCARICIN [Suspect]
     Dosage: (50 MG)
     Dates: start: 20090224
  4. BROTIZOLAM [Concomitant]
  5. MAGNESIUM OXIDE [Concomitant]

REACTIONS (5)
  - ANAEMIA [None]
  - HAEMATURIA [None]
  - HYPERKALAEMIA [None]
  - PROTEIN URINE PRESENT [None]
  - RENAL IMPAIRMENT [None]
